FAERS Safety Report 5803436-7 (Version None)
Quarter: 2008Q2

REPORT INFORMATION
  Report Type: 
  Country: None (occurrence: None)
  Receive Date: 20080627
  Receipt Date: 20080327
  Transmission Date: 20081010
  Serious: Yes (Other)
  Sender: FDA-Public Use
  Company Number: 46705

PATIENT
  Age: 5 Month
  Sex: Male
  Weight: 5 kg

DRUGS (8)
  1. VECURONIUM BROMIDE [Suspect]
     Indication: SEDATIVE THERAPY
     Dosage: 1MCG;KG/MIN VIA CONTINOUS IV INFUS
     Route: 042
     Dates: start: 20080326
  2. CALCIUM CHLORIDE [Concomitant]
  3. POTASSIUM CHLORIDE [Concomitant]
  4. VANCOMYCIN HCL [Concomitant]
  5. CEFTAZIDINE [Concomitant]
  6. MILRINONE LACTATE [Concomitant]
  7. FENTANYL-25 [Concomitant]
  8. HEPARIN [Concomitant]

REACTIONS (1)
  - DRUG INEFFECTIVE [None]
